FAERS Safety Report 7325939-9 (Version None)
Quarter: 2011Q1

REPORT INFORMATION
  Report Type: 
  Country: None (occurrence: None)
  Receive Date: 20110217
  Receipt Date: 20110208
  Transmission Date: 20110831
  Serious: Yes (Other)
  Sender: FDA-Public Use
  Company Number: 827258

PATIENT
  Age: 63 Year
  Sex: Male
  Weight: 75 kg

DRUGS (5)
  1. VANCOMYCIN HYDROCHLORIDE [Suspect]
     Indication: INFECTION
     Dosage: 500 MG MILLIGRAMS, INTRA-ARTERIAL
     Dates: start: 20100726
  2. CALCICHEW [Concomitant]
  3. AMITRIPTYLINE [Concomitant]
  4. OXYCONTIN [Concomitant]
  5. PREGABALIN [Concomitant]

REACTIONS (8)
  - OEDEMA PERIPHERAL [None]
  - INCORRECT ROUTE OF DRUG ADMINISTRATION [None]
  - SKIN DISCOLOURATION [None]
  - PAIN IN EXTREMITY [None]
  - ADMINISTRATION SITE PAIN [None]
  - DRUG ADMINISTRATION ERROR [None]
  - LIVEDO RETICULARIS [None]
  - CYANOSIS [None]
